FAERS Safety Report 5018895-X (Version None)
Quarter: 2006Q2

REPORT INFORMATION
  Report Type: 
  Country: None (occurrence: None)
  Receive Date: 20060531
  Receipt Date: 20060522
  Transmission Date: 20061013
  Serious: Yes (Hospitalization)
  Sender: FDA-Public Use
  Company Number: 0600169US

PATIENT
  Age: 56 Year
  Sex: Female
  Weight: 66.7 kg

DRUGS (3)
  1. BOTOX [Suspect]
     Indication: SKIN WRINKLING
     Dosage: 28 UNITS, SINGLE, INTRAMUSCULAR
     Route: 030
     Dates: start: 20060510, end: 20060510
  2. KENALOG [Suspect]
     Dosage: SINGLE
     Dates: start: 20060510, end: 20060510
  3. CRESTOR [Concomitant]

REACTIONS (8)
  - BLOOD GLUCOSE INCREASED [None]
  - EYE SWELLING [None]
  - EYELID PTOSIS [None]
  - HYPERSENSITIVITY [None]
  - PYREXIA [None]
  - SKIN TIGHTNESS [None]
  - SWELLING FACE [None]
  - SWOLLEN TONGUE [None]
